FAERS Safety Report 5248620-9 (Version None)
Quarter: 2007Q1

REPORT INFORMATION
  Report Type: 
  Country: None (occurrence: None)
  Receive Date: 20070222
  Receipt Date: 20070205
  Transmission Date: 20070707
  Serious: Yes (Hospitalization, Other)
  Sender: FDA-Public Use
  Company Number: 2007-00189

PATIENT
  Age: 59 Year
  Sex: Female
  Weight: 57.6 kg

DRUGS (8)
  1. VELCADE [Suspect]
     Indication: MANTLE CELL LYMPHOMA
     Dosage: 2.1 MG, IV BOLUS
     Route: 040
     Dates: start: 20061212
  2. NORVASC [Concomitant]
  3. NORCO [Concomitant]
  4. PERCOCET [Concomitant]
  5. ZOFRAN [Concomitant]
  6. LEXAPRO [Concomitant]
  7. ATIVAN [Concomitant]
  8. VALIUM [Concomitant]

REACTIONS (6)
  - ANAEMIA [None]
  - CLOSTRIDIUM DIFFICILE COLITIS [None]
  - HYPOMAGNESAEMIA [None]
  - LEUKOPENIA [None]
  - TACHYCARDIA [None]
  - THROMBOCYTOPENIA [None]
